FAERS Safety Report 12688786 (Version 1)
Quarter: 2016Q3

REPORT INFORMATION
  Report Type: Spontaneous
  Country: IT (occurrence: IT)
  Receive Date: 20160825
  Receipt Date: 20160825
  Transmission Date: 20161109
  Serious: Yes (Hospitalization)
  Sender: FDA-Public Use
  Company Number: IT-ASTRAZENECA-2016SE90086

PATIENT
  Age: 28632 Day
  Sex: Male

DRUGS (3)
  1. CAPECITABINE. [Suspect]
     Active Substance: CAPECITABINE
     Indication: ADENOCARCINOMA GASTRIC
     Route: 048
     Dates: start: 20160621, end: 20160722
  2. ANTRA [Suspect]
     Active Substance: OMEPRAZOLE
     Route: 048
     Dates: start: 20160601, end: 20160816
  3. OMEPRAZOLE. [Concomitant]
     Active Substance: OMEPRAZOLE
     Dosage: 40.0MG UNKNOWN
     Route: 048
     Dates: start: 20160601, end: 20160816

REACTIONS (6)
  - Diarrhoea [Recovering/Resolving]
  - Erythema [Recovering/Resolving]
  - Rash [Unknown]
  - Respiratory distress [Recovering/Resolving]
  - Anaemia [Recovering/Resolving]
  - Mucosal inflammation [Recovering/Resolving]

NARRATIVE: CASE EVENT DATE: 20160701
